FAERS Safety Report 6668161-1 (Version None)
Quarter: 2010Q2

REPORT INFORMATION
  Report Type: 
  Country: None (occurrence: None)
  Receive Date: 20100405
  Receipt Date: 20100405
  Transmission Date: 20101027
  Serious: Yes (Disabling)
  Sender: FDA-Public Use
  Company Number: None

PATIENT
  Age: 44 Year
  Sex: Male
  Weight: 89.8122 kg

DRUGS (1)
  1. VYTORIN [Suspect]
     Dosage: VYTORIN 10/0 ONE DAILY ORAL
     Route: 048
     Dates: start: 20050721, end: 20050830

REACTIONS (3)
  - IMPAIRED WORK ABILITY [None]
  - NEUROPATHY PERIPHERAL [None]
  - RHABDOMYOLYSIS [None]
